FAERS Safety Report 23084412 (Version 1)
Quarter: 2023Q4

REPORT INFORMATION
  Report Type: Spontaneous
  Country: CA (occurrence: CA)
  Receive Date: 20231019
  Receipt Date: 20231019
  Transmission Date: 20240110
  Serious: Yes (Other)
  Sender: FDA-Public Use
  Company Number: CA-PFIZER INC-202300331223

PATIENT
  Sex: Male

DRUGS (4)
  1. METHOTREXATE SODIUM [Suspect]
     Active Substance: METHOTREXATE SODIUM
  2. DOXYCYCLINE [Suspect]
     Active Substance: DOXYCYCLINE
  3. MYCOPHENOLATE MOFETIL [Suspect]
     Active Substance: MYCOPHENOLATE MOFETIL
  4. PREDNISONE [Suspect]
     Active Substance: PREDNISONE

REACTIONS (2)
  - Treatment failure [Unknown]
  - Blindness [Unknown]
